FAERS Safety Report 6711886-X (Version None)
Quarter: 2010Q2

REPORT INFORMATION
  Report Type: 
  Country: None (occurrence: None)
  Receive Date: 20100505
  Receipt Date: 20100429
  Transmission Date: 20101027
  Serious: Yes (Hospitalization)
  Sender: FDA-Public Use
  Company Number: FR-MERCK-1005FRA00001

PATIENT
  Age: 85 Year
  Sex: Female

DRUGS (6)
  1. JANUMET [Suspect]
     Indication: TYPE 2 DIABETES MELLITUS
     Route: 048
     Dates: start: 20091101, end: 20100301
  2. JANUMET [Suspect]
     Route: 048
     Dates: start: 20100401, end: 20100414
  3. JANUVIA [Concomitant]
     Indication: TYPE 2 DIABETES MELLITUS
     Route: 048
     Dates: start: 20080801, end: 20091101
  4. METFORMIN [Concomitant]
     Indication: TYPE 2 DIABETES MELLITUS
     Route: 048
     Dates: end: 20091101
  5. ALPRAZOLAM [Concomitant]
     Route: 048
  6. OLMESARTAN MEDOXOMIL [Concomitant]
     Indication: HYPERTENSION
     Route: 048

REACTIONS (3)
  - FALL [None]
  - MALAISE [None]
  - THROMBOCYTOPENIA [None]
